FAERS Safety Report 5478005-1 (Version None)
Quarter: 2007Q4

REPORT INFORMATION
  Report Type: 
  Country: None (occurrence: None)
  Receive Date: 20071005
  Receipt Date: 20070926
  Transmission Date: 20080405
  Serious: Yes (Hospitalization, Other)
  Sender: FDA-Public Use
  Company Number: US-JNJFOC-20070905519

PATIENT
  Age: 49 Year
  Sex: Female

DRUGS (17)
  1. PREZISTA [Suspect]
     Indication: HIV INFECTION
     Route: 048
  2. NORVIR [Concomitant]
     Route: 065
  3. MK-0518 [Concomitant]
     Route: 065
  4. PERCOCET [Concomitant]
     Route: 065
  5. ALPRAZOLAM [Concomitant]
     Route: 065
  6. EPIVIR [Concomitant]
     Route: 065
  7. FUZEON [Concomitant]
     Route: 065
  8. ALBUTEROL [Concomitant]
     Route: 065
  9. DOSS [Concomitant]
     Route: 065
  10. ELAVIL [Concomitant]
     Route: 065
  11. VALTREX [Concomitant]
     Route: 065
  12. NEURONTIN [Concomitant]
     Route: 065
  13. ZITHROMAX [Concomitant]
     Route: 065
  14. ROBITUSSIN [Concomitant]
     Route: 065
  15. LIDODERM [Concomitant]
     Route: 065
  16. BACTRIM [Concomitant]
     Route: 065
  17. METHADONE HCL [Concomitant]
     Route: 065

REACTIONS (1)
  - BRADYCARDIA [None]
